FAERS Safety Report 26149490 (Version 1)
Quarter: 2025Q4

REPORT INFORMATION
  Report Type: Spontaneous
  Country: US (occurrence: US)
  Receive Date: 20251212
  Receipt Date: 20251212
  Transmission Date: 20260119
  Serious: No
  Sender: BRISTOL-MYERS SQUIBB COMPANY
  Company Number: US-BRISTOL-MYERS SQUIBB COMPANY-2025-167358

PATIENT
  Age: 70 Year
  Sex: Female
  Weight: 48.99 kg

DRUGS (2)
  1. ELIQUIS [Suspect]
     Active Substance: APIXABAN
     Indication: Deep vein thrombosis
     Dosage: DOSE : 1 TABLET;     FREQ : TWICE DAILY.
     Route: 048
  2. ANASTROZOLE [Concomitant]
     Active Substance: ANASTROZOLE
     Indication: Product used for unknown indication

REACTIONS (2)
  - Constipation [Unknown]
  - Alopecia [Unknown]
